FAERS Safety Report 20237126 (Version 1)
Quarter: 2021Q4

REPORT INFORMATION
  Report Type: Spontaneous
  Country: JP (occurrence: JP)
  Receive Date: 20211228
  Receipt Date: 20211228
  Transmission Date: 20220303
  Serious: Yes (Hospitalization, Other)
  Sender: FDA-Public Use
  Company Number: JP-BAYER-2017-114607

PATIENT
  Age: 76 Year
  Sex: Male
  Weight: 61 kg

DRUGS (13)
  1. XOFIGO [Suspect]
     Active Substance: RADIUM RA-223 DICHLORIDE
     Indication: Hormone-refractory prostate cancer
     Dosage: 3355KBQ, Q1MON
     Route: 042
     Dates: start: 20170113, end: 20170113
  2. XOFIGO [Suspect]
     Active Substance: RADIUM RA-223 DICHLORIDE
     Indication: Metastases to bone
     Dosage: 3355KBQ, Q1MON
     Route: 042
     Dates: start: 20170210, end: 20170210
  3. XOFIGO [Suspect]
     Active Substance: RADIUM RA-223 DICHLORIDE
     Indication: Hormone-refractory prostate cancer
     Dosage: 3355KBQ, Q1MON
     Route: 042
     Dates: start: 20170310, end: 20170310
  4. XOFIGO [Suspect]
     Active Substance: RADIUM RA-223 DICHLORIDE
     Indication: Hormone-refractory prostate cancer
     Dosage: 3355KBQ, Q1MON
     Route: 042
     Dates: start: 20170407, end: 20170407
  5. XOFIGO [Suspect]
     Active Substance: RADIUM RA-223 DICHLORIDE
     Indication: Hormone-refractory prostate cancer
     Dosage: 3355KBQ, Q1MON
     Route: 042
     Dates: start: 20170512, end: 20170512
  6. ASPIRIN [Concomitant]
     Active Substance: ASPIRIN
     Indication: Prophylaxis
     Dosage: DAILY DOSE 100 MG
     Route: 048
     Dates: end: 20170703
  7. ETHINYL ESTRADIOL [Concomitant]
     Active Substance: ETHINYL ESTRADIOL
     Indication: Hormone-refractory prostate cancer
     Dosage: DAILY DOSE 1 MG
     Route: 048
     Dates: end: 20170703
  8. ETHINYL ESTRADIOL [Concomitant]
     Active Substance: ETHINYL ESTRADIOL
     Indication: Metastases to bone
  9. CALONAL [Concomitant]
     Active Substance: ACETAMINOPHEN
     Indication: Back pain
     Dosage: DAILY DOSE 1500 MG
     Route: 048
  10. DEXAMETHASONE [Concomitant]
     Active Substance: DEXAMETHASONE
     Indication: Hormone-refractory prostate cancer
     Dosage: DAILY DOSE .5 MG
     Route: 048
     Dates: start: 20170310
  11. DEXAMETHASONE [Concomitant]
     Active Substance: DEXAMETHASONE
     Indication: Metastases to bone
  12. DENOSUMAB [Concomitant]
     Active Substance: DENOSUMAB
     Dosage: UNK
     Dates: start: 20161203, end: 20170703
  13. ETHINYL ESTRADIOL [Concomitant]
     Active Substance: ETHINYL ESTRADIOL
     Dosage: UNK
     Dates: start: 20170103, end: 20170703

REACTIONS (5)
  - Anaemia [Recovering/Resolving]
  - Platelet count decreased [Recovering/Resolving]
  - Haemoglobin decreased [Recovering/Resolving]
  - Metastases to adrenals [None]
  - Prostatic specific antigen increased [None]

NARRATIVE: CASE EVENT DATE: 20170310
